FAERS Safety Report 8506150-2 (Version None)
Quarter: 2012Q3

REPORT INFORMATION
  Report Type: 
  Country: None (occurrence: None)
  Receive Date: 20120712
  Receipt Date: 20120712
  Transmission Date: 20120928
  Serious: Yes (Other)
  Sender: FDA-Public Use
  Company Number: US-ROCHE-1082867

PATIENT
  Age: 48 Year
  Sex: Female

DRUGS (2)
  1. PREDNISONE [Concomitant]
  2. RITUXAN [Suspect]
     Indication: RHEUMATOID ARTHRITIS

REACTIONS (1)
  - METASTATIC MALIGNANT MELANOMA [None]
